FAERS Safety Report 4542056-1 (Version None)
Quarter: 2004Q4

REPORT INFORMATION
  Report Type: 
  Country: None (occurrence: None)
  Receive Date: 20041227
  Receipt Date: 20041220
  Transmission Date: 20050328
  Serious: Yes (Hospitalization)
  Sender: FDA-Public Use
  Company Number: 2004106577

PATIENT
  Age: 61 Year
  Sex: Female

DRUGS (3)
  1. LIPITOR [Suspect]
     Indication: HYPERLIPIDAEMIA
     Dosage: 10 MG (1 IN 1 D), ORAL
     Route: 048
     Dates: start: 20030401, end: 20041201
  2. BISOPROLOL FUMARATE [Concomitant]
  3. LANSOPRAZOLE (LANSOPRAZOLE)Q [Concomitant]

REACTIONS (1)
  - DIABETES MELLITUS INSULIN-DEPENDENT [None]
